FAERS Safety Report 4801681-0 (Version None)
Quarter: 2005Q4

REPORT INFORMATION
  Report Type: 
  Country: None (occurrence: None)
  Receive Date: 20051018
  Receipt Date: 20051007
  Transmission Date: 20060501
  Serious: Yes (Disabling)
  Sender: FDA-Public Use
  Company Number: US-GLAXOSMITHKLINE-A0577535A

PATIENT
  Age: 48 Year
  Sex: Male

DRUGS (11)
  1. REQUIP [Suspect]
     Indication: RESTLESS LEGS SYNDROME
     Route: 048
  2. LASIX [Concomitant]
  3. ANTI-CHOLESTEROL MEDICATION [Concomitant]
  4. GLUCOPHAGE [Concomitant]
  5. TOPROL-XL [Concomitant]
  6. AVAPRO [Concomitant]
  7. POTASSIUM [Concomitant]
  8. PLAVIX [Concomitant]
  9. SEROQUEL [Concomitant]
  10. SYNTHROID [Concomitant]
  11. ADDERALL XR 15 [Concomitant]

REACTIONS (2)
  - AKATHISIA [None]
  - TREMOR [None]
